FAERS Safety Report 6098758-1 (Version None)
Quarter: 2009Q1

REPORT INFORMATION
  Report Type: 
  Country: None (occurrence: None)
  Receive Date: 20090302
  Receipt Date: 20090218
  Transmission Date: 20090719
  Serious: Yes (Other)
  Sender: FDA-Public Use
  Company Number: DE-PFIZER INC-2009172420

PATIENT

DRUGS (3)
  1. DIFLUCAN [Suspect]
     Indication: SUPERINFECTION FUNGAL
     Dosage: 800 MG, 3X/WEEK
     Route: 042
     Dates: start: 20090201
  2. DIFLUCAN [Suspect]
     Dosage: 100 MG, 1X/DAY
     Route: 042
     Dates: start: 20090201
  3. ANTIBIOTICS [Concomitant]

REACTIONS (3)
  - HYPERAESTHESIA [None]
  - HYPERSENSITIVITY [None]
  - PAIN OF SKIN [None]
